FAERS Safety Report 9133393 (Version 1)
Quarter: 2013Q1

REPORT INFORMATION
  Report Type: Spontaneous
  Country: ES (occurrence: ES)
  Receive Date: 20130125
  Receipt Date: 20130125
  Transmission Date: 20140127
  Serious: Yes (Other)
  Sender: FDA-Public Use
  Company Number: ES-B.I. PHARMACEUTICALS,INC./RIDGEFIELD-2013-ES-00019ES

PATIENT
  Age: 44 Year
  Sex: Female

DRUGS (1)
  1. MOVALIS [Suspect]
     Indication: ARTHRALGIA
     Dosage: 30 MG
     Route: 048
     Dates: start: 20121129, end: 20121129

REACTIONS (2)
  - Oral mucosal blistering [Recovered/Resolved]
  - Face oedema [Recovered/Resolved]
